FAERS Safety Report 7371006-8 (Version None)
Quarter: 2011Q1

REPORT INFORMATION
  Report Type: 
  Country: None (occurrence: None)
  Receive Date: 20110321
  Receipt Date: 20110321
  Transmission Date: 20110831
  Serious: No
  Sender: FDA-Public Use
  Company Number: None

PATIENT
  Age: 28 Year
  Sex: Female
  Weight: 49.8957 kg

DRUGS (1)
  1. AVELOX [Suspect]
     Indication: ACUTE SINUSITIS
     Dosage: 400MG 1/DAY PO
     Route: 048
     Dates: start: 20110227, end: 20110307

REACTIONS (1)
  - TENDONITIS [None]
